FAERS Safety Report 5446241-6 (Version None)
Quarter: 2007Q3

REPORT INFORMATION
  Report Type: 
  Country: None (occurrence: None)
  Receive Date: 20070731
  Receipt Date: 20070326
  Transmission Date: 20080115
  Serious: Yes (Hospitalization)
  Sender: FDA-Public Use
  Company Number: US-2007-010808

PATIENT
  Age: 34 Year
  Sex: Female
  Weight: 75.7 kg

DRUGS (3)
  1. MAGNEVIST [Suspect]
     Indication: NUCLEAR MAGNETIC RESONANCE IMAGING BRAIN
     Dosage: 15 ML, 1 DOSE, INTRAVENOUS
     Route: 042
     Dates: start: 20070220, end: 20070220
  2. AMBIEN [Concomitant]
  3. FLEXERIL [Concomitant]

REACTIONS (4)
  - DYSPNOEA [None]
  - ERYTHEMA [None]
  - PRURITUS [None]
  - WHEEZING [None]
